FAERS Safety Report 24799587 (Version 1)
Quarter: 2025Q1

REPORT INFORMATION
  Report Type: Spontaneous
  Country: US (occurrence: None)
  Receive Date: 20250102
  Receipt Date: 20250102
  Transmission Date: 20250409
  Serious: Yes (Hospitalization)
  Sender: FDA-CTU
  Company Number: None

PATIENT
  Age: 67 Year
  Sex: Female
  Weight: 61.2 kg

DRUGS (4)
  1. FLUOROURACIL [Suspect]
     Active Substance: FLUOROURACIL
     Dates: start: 20241206
  2. IRINOTECAN [Suspect]
     Active Substance: IRINOTECAN
     Dates: start: 20241204
  3. LEUCOVORIN CALCIUM [Suspect]
     Active Substance: LEUCOVORIN CALCIUM
     Dates: start: 20241204
  4. ELOXATIN [Suspect]
     Active Substance: OXALIPLATIN
     Dates: start: 20241204

REACTIONS (6)
  - Urinary tract infection [None]
  - Febrile neutropenia [None]
  - Enteritis [None]
  - Diarrhoea [None]
  - Clostridium difficile infection [None]
  - Mucosal inflammation [None]

NARRATIVE: CASE EVENT DATE: 20241213
